FAERS Safety Report 4450720-8 (Version None)
Quarter: 2004Q3

REPORT INFORMATION
  Report Type: 
  Country: None (occurrence: None)
  Receive Date: 20040914
  Receipt Date: 20040914
  Transmission Date: 20050211
  Serious: No
  Sender: FDA-Public Use
  Company Number: None

PATIENT
  Age: 32 Year
  Sex: Female

DRUGS (3)
  1. TAXOTERE [Suspect]
     Indication: GASTRIC CANCER
     Dosage: IV
     Route: 042
     Dates: start: 20030402, end: 20030807
  2. CISPLATIN [Suspect]
     Indication: GASTRIC CANCER
     Dosage: IV
     Route: 042
     Dates: start: 20030402, end: 20030807
  3. CPT-11  (D 1,8 OF 21 D CYCLE) [Suspect]
     Indication: GASTRIC CANCER
     Dosage: IV
     Route: 042
     Dates: start: 20030402, end: 20030807

REACTIONS (3)
  - DISEASE PROGRESSION [None]
  - PYREXIA [None]
  - RASH [None]
